FAERS Safety Report 6657894-9 (Version None)
Quarter: 2010Q1

REPORT INFORMATION
  Report Type: 
  Country: None (occurrence: None)
  Receive Date: 20100330
  Receipt Date: 20100322
  Transmission Date: 20100710
  Serious: Yes (Other)
  Sender: FDA-Public Use
  Company Number: US-SANOFI-AVENTIS-2010SA017150

PATIENT
  Sex: Male

DRUGS (3)
  1. DIABETA [Suspect]
     Route: 065
  2. LIPITOR [Concomitant]
  3. QUINAPRIL [Concomitant]

REACTIONS (1)
  - DIABETIC RETINOPATHY [None]
